FAERS Safety Report 5055524-3 (Version None)
Quarter: 2006Q3

REPORT INFORMATION
  Report Type: 
  Country: None (occurrence: None)
  Receive Date: 20060714
  Receipt Date: 20060626
  Transmission Date: 20061208
  Serious: Yes (Other)
  Sender: FDA-Public Use
  Company Number: 163-20785-06050464

PATIENT
  Age: 13 Year
  Sex: Male

DRUGS (7)
  1. THALOMID [Suspect]
     Indication: ARTERIOVENOUS MALFORMATION
     Dosage: 800 MG, 1 IN 1 D, ORAL
     Route: 048
     Dates: start: 20041001, end: 20060428
  2. DOXYCYCLINE [Suspect]
     Dates: start: 20060101
  3. DIAMOX [Concomitant]
  4. CELEBREX [Concomitant]
  5. DIGOXIN [Concomitant]
  6. PLAVIX [Concomitant]
  7. ASPIRIN TAB [Concomitant]

REACTIONS (6)
  - BENIGN INTRACRANIAL HYPERTENSION [None]
  - CSF TEST ABNORMAL [None]
  - HEADACHE [None]
  - PAIN [None]
  - SCIATIC NERVE INJURY [None]
  - VISION BLURRED [None]
